FAERS Safety Report 4845260-8 (Version None)
Quarter: 2005Q4

REPORT INFORMATION
  Report Type: 
  Country: None (occurrence: None)
  Receive Date: 20051125
  Receipt Date: 20051111
  Transmission Date: 20060501
  Serious: Yes (Other)
  Sender: FDA-Public Use
  Company Number: 05-132

PATIENT
  Age: 52 Year
  Sex: Female
  Weight: 92.5338 kg

DRUGS (1)
  1. CITALOPRAM HBR TABLETS 10MG/100COUNT [Suspect]
     Dosage: 10MG/ORAL; SINCE 3 YRS
     Route: 048

REACTIONS (4)
  - DYSPNOEA [None]
  - PALPITATIONS [None]
  - PRURITUS [None]
  - RASH [None]
